FAERS Safety Report 9688520 (Version 1)
Quarter: 2013Q4

REPORT INFORMATION
  Report Type: Spontaneous
  Country: IT (occurrence: None)
  Receive Date: 20131112
  Receipt Date: 20131112
  Transmission Date: 20140711
  Serious: Yes (Other)
  Sender: FDA-Public Use
  Company Number: FK201304866

PATIENT
  Age: 82 Year
  Sex: Male

DRUGS (6)
  1. MANNITOL (MANUFACTURER UNKNOWN) (MANNITOL) (MANNITOL) [Suspect]
     Indication: TRANSIENT ISCHAEMIC ATTACK
     Dosage: 500 ML, DAILY, INTRAVENOUS (NOT OTHERWISE SPECIFIED)
     Route: 042
     Dates: start: 20130730, end: 20131008
  2. CONGESCOR (BISOPROLOL) [Concomitant]
  3. CLEXANE (ENOXAPARIN SODIUM) [Concomitant]
  4. LASIX [Concomitant]
  5. LANSOX (LANSOPRAZOLE) [Concomitant]
  6. TILDIEM (DILTIAZE HYDROCHLORIDE) [Concomitant]

REACTIONS (1)
  - Renal failure acute [None]
